FAERS Safety Report 5445842-9 (Version None)
Quarter: 2007Q3

REPORT INFORMATION
  Report Type: 
  Country: None (occurrence: None)
  Receive Date: 20070904
  Receipt Date: 20070820
  Transmission Date: 20080115
  Serious: Yes (Life-Threatening, Hospitalization)
  Sender: FDA-Public Use
  Company Number: GXKR2007NL07133

PATIENT
  Age: 66 Year
  Sex: Female

DRUGS (5)
  1. NORTRIPTYLINE HCL [Suspect]
  2. VALPROIC ACID [Suspect]
  3. PROPRANOLOL [Concomitant]
  4. CODEINE PHOSPHATE (CODEINE PHOSPHATE) [Concomitant]
  5. CALCIUM (CALCIUM) [Concomitant]

REACTIONS (30)
  - ACUTE STRESS DISORDER [None]
  - ALANINE AMINOTRANSFERASE INCREASED [None]
  - ANAEMIA [None]
  - ASPARTATE AMINOTRANSFERASE INCREASED [None]
  - ASPIRATION [None]
  - BLOOD CALCIUM DECREASED [None]
  - BLOOD CREATINE PHOSPHOKINASE INCREASED [None]
  - BLOOD GLUCOSE INCREASED [None]
  - BLOOD POTASSIUM INCREASED [None]
  - BODY TEMPERATURE INCREASED [None]
  - BUNDLE BRANCH BLOCK BILATERAL [None]
  - C-REACTIVE PROTEIN INCREASED [None]
  - CARDIOGENIC SHOCK [None]
  - COMA [None]
  - DRUG INTERACTION [None]
  - DRUG TOXICITY [None]
  - GASTROINTESTINAL HAEMORRHAGE [None]
  - HYPERVENTILATION [None]
  - INFLUENZA LIKE ILLNESS [None]
  - LETHARGY [None]
  - LUNG INFILTRATION [None]
  - METABOLIC ACIDOSIS [None]
  - MONOPARESIS [None]
  - MYDRIASIS [None]
  - MYOCARDIAL INFARCTION [None]
  - NERVE COMPRESSION [None]
  - PUPILLARY REFLEX IMPAIRED [None]
  - RENAL IMPAIRMENT [None]
  - RENAL TUBULAR NECROSIS [None]
  - WHITE BLOOD CELL COUNT INCREASED [None]
